FAERS Safety Report 21847494 (Version 1)
Quarter: 2023Q1

REPORT INFORMATION
  Report Type: Other
  Country: GB (occurrence: GB)
  Receive Date: 20230111
  Receipt Date: 20230111
  Transmission Date: 20230418
  Serious: Yes (Other)
  Sender: FDA-Public Use
  Company Number: None

PATIENT

DRUGS (1)
  1. XTANDI [Suspect]
     Active Substance: ENZALUTAMIDE
     Indication: Neoplasm malignant
     Dosage: UNK UNK, UNKNOWN FREQ.
     Route: 065

REACTIONS (15)
  - Hallucination [Unknown]
  - Mental impairment [Unknown]
  - Myalgia [Unknown]
  - Muscle spasms [Unknown]
  - Abdominal discomfort [Unknown]
  - Memory impairment [Unknown]
  - Nasal dryness [Unknown]
  - Dry mouth [Unknown]
  - Saliva altered [Unknown]
  - Taste disorder [Unknown]
  - Muscular weakness [Unknown]
  - Back pain [Unknown]
  - Gait disturbance [Unknown]
  - Dyspnoea [Unknown]
  - Haemoptysis [Unknown]
